FAERS Safety Report 21396244 (Version 1)
Quarter: 2022Q3

REPORT INFORMATION
  Report Type: Spontaneous
  Country: KR (occurrence: KR)
  Receive Date: 20220930
  Receipt Date: 20220930
  Transmission Date: 20221027
  Serious: Yes (Hospitalization, Other)
  Sender: FDA-Public Use
  Company Number: KR-SUN PHARMACEUTICAL INDUSTRIES LTD-2022RR-356555

PATIENT
  Age: 41 Year
  Sex: Male

DRUGS (5)
  1. CARVEDILOL [Suspect]
     Active Substance: CARVEDILOL
     Indication: Cardiac failure
     Dosage: UNK
     Route: 065
  2. FLECAINIDE [Suspect]
     Active Substance: FLECAINIDE
     Indication: Atrial fibrillation
     Dosage: UNK
     Route: 065
  3. RAMIPRIL [Suspect]
     Active Substance: RAMIPRIL
     Indication: Cardiac failure
     Dosage: UNK
     Route: 065
  4. DILTIAZEM [Suspect]
     Active Substance: DILTIAZEM
     Indication: Atrial fibrillation
     Dosage: UNK
     Route: 065
  5. mycofenolate mofetil [Concomitant]
     Indication: Immunosuppression
     Dosage: UNK
     Route: 065

REACTIONS (3)
  - Cardiac failure congestive [Recovering/Resolving]
  - Ventricular dysfunction [Recovering/Resolving]
  - Acute kidney injury [Recovered/Resolved]
